FAERS Safety Report 7274779-8 (Version None)
Quarter: 2011Q1

REPORT INFORMATION
  Report Type: 
  Country: None (occurrence: None)
  Receive Date: 20110204
  Receipt Date: 20110127
  Transmission Date: 20110831
  Serious: Yes (Other)
  Sender: FDA-Public Use
  Company Number: US-AMGEN-USASP2011005346

PATIENT
  Age: 17 Year
  Sex: Male

DRUGS (1)
  1. ENBREL [Suspect]
     Indication: ANKYLOSING SPONDYLITIS

REACTIONS (14)
  - ARRHYTHMIA [None]
  - ENTHESOPATHY [None]
  - CLUSTER HEADACHE [None]
  - INJECTION SITE WARMTH [None]
  - MUSCULAR WEAKNESS [None]
  - INJECTION SITE ERYTHEMA [None]
  - SINUS TACHYCARDIA [None]
  - INJECTION SITE SWELLING [None]
  - PALLOR [None]
  - ANKYLOSING SPONDYLITIS [None]
  - HYPERTENSION [None]
  - EPISTAXIS [None]
  - DIZZINESS [None]
  - PARAESTHESIA [None]
